FAERS Safety Report 7780574-3 (Version None)
Quarter: 2011Q3

REPORT INFORMATION
  Report Type: 
  Country: None (occurrence: None)
  Receive Date: 20110927
  Receipt Date: 20110923
  Transmission Date: 20111222
  Serious: Yes (Death, Life-Threatening, Other)
  Sender: FDA-Public Use
  Company Number: JP-SANOFI-AVENTIS-2011SA062560

PATIENT
  Age: 62 Year
  Sex: Female

DRUGS (7)
  1. GRANISETRON [Concomitant]
     Dates: start: 20110610, end: 20110610
  2. LEUCOVORIN CALCIUM [Suspect]
     Indication: COLON CANCER METASTATIC
     Route: 041
     Dates: start: 20110610, end: 20110610
  3. DEXAMETHASONE SODIUM PHOSPHATE [Concomitant]
     Dates: start: 20110610, end: 20110610
  4. LOXONIN [Concomitant]
     Dates: start: 20110604
  5. OXALIPLATIN [Suspect]
     Indication: COLON CANCER METASTATIC
     Route: 041
     Dates: start: 20110610, end: 20110610
  6. AVASTIN [Suspect]
     Indication: COLON CANCER METASTATIC
     Route: 041
     Dates: start: 20110610, end: 20110610
  7. EFUDEX [Suspect]
     Indication: COLON CANCER METASTATIC
     Route: 041
     Dates: start: 20110610, end: 20110601

REACTIONS (4)
  - DISEASE PROGRESSION [None]
  - INFECTIOUS PERITONITIS [None]
  - NEUTROPHIL COUNT DECREASED [None]
  - WHITE BLOOD CELL COUNT DECREASED [None]
